FAERS Safety Report 10832799 (Version 1)
Quarter: 2015Q1

REPORT INFORMATION
  Report Type: Report from Study
  Country: US (occurrence: US)
  Receive Date: 20150219
  Receipt Date: 20150219
  Transmission Date: 20150721
  Serious: No
  Sender: FDA-Public Use
  Company Number: US-ABBVIE-14P-163-1200689-00

PATIENT
  Age: 56 Year

DRUGS (2)
  1. HUMIRA [Suspect]
     Active Substance: ADALIMUMAB
     Indication: PSORIATIC ARTHROPATHY
     Route: 058
     Dates: end: 201401
  2. HUMIRA [Suspect]
     Active Substance: ADALIMUMAB
     Dates: start: 201401

REACTIONS (3)
  - Inappropriate schedule of drug administration [Unknown]
  - Joint stiffness [Not Recovered/Not Resolved]
  - Drug ineffective [Unknown]

NARRATIVE: CASE EVENT DATE: 201401
